FAERS Safety Report 10704580 (Version 1)
Quarter: 2014Q4

REPORT INFORMATION
  Report Type: Report from Study
  Country: US (occurrence: None)
  Receive Date: 20141224
  Receipt Date: 20141224
  Transmission Date: 20150529
  Serious: No
  Sender: FDA-Public Use
  Company Number: CABO-14004697

PATIENT
  Age: 32 Year
  Sex: Female

DRUGS (1)
  1. COMETRIQ [Suspect]
     Active Substance: CABOZANTINIB S-MALATE
     Indication: THYROID CANCER
     Route: 048
     Dates: start: 20140821, end: 20140922

REACTIONS (8)
  - Toothache [None]
  - Hypoaesthesia [None]
  - Abdominal pain upper [None]
  - Weight decreased [None]
  - Red blood cell count decreased [None]
  - Hypertension [None]
  - Dry mouth [None]
  - Gastric pH decreased [None]

NARRATIVE: CASE EVENT DATE: 2014
